FAERS Safety Report 4592890-7 (Version None)
Quarter: 2005Q1

REPORT INFORMATION
  Report Type: 
  Country: None (occurrence: None)
  Receive Date: 20050218
  Receipt Date: 20050209
  Transmission Date: 20050727
  Serious: Yes (Death, Hospitalization, Other)
  Sender: FDA-Public Use
  Company Number: 2004-10-0718

PATIENT
  Age: 61 Year
  Sex: Male

DRUGS (2)
  1. TEMOZOLOMIDE CAPSULES [Suspect]
     Indication: ASTROCYTOMA
     Dosage: 215MGQDX21D* ORAL
     Route: 048
     Dates: start: 20040825, end: 20040914
  2. TEMOZOLOMIDE CAPSULES [Suspect]
     Indication: ASTROCYTOMA
     Dosage: 215MGQDX21D* ORAL
     Route: 048
     Dates: end: 20040914

REACTIONS (9)
  - CONVULSION [None]
  - EPISTAXIS [None]
  - FALL [None]
  - HAEMOGLOBIN DECREASED [None]
  - MALAISE [None]
  - NEUTROPENIA [None]
  - PYREXIA [None]
  - SEPSIS [None]
  - THROMBOCYTOPENIA [None]
